FAERS Safety Report 25978739 (Version 1)
Quarter: 2025Q4

REPORT INFORMATION
  Report Type: Spontaneous
  Country: US (occurrence: US)
  Receive Date: 20251030
  Receipt Date: 20251030
  Transmission Date: 20260118
  Serious: No
  Sender: Kenvue
  Company Number: US-KENVUE-20251005926

PATIENT
  Age: 5 Year
  Sex: Male

DRUGS (1)
  1. CHILDRENS MOTRIN [Suspect]
     Active Substance: IBUPROFEN
     Indication: Accidental exposure to product by child
     Dosage: AROUND 30ML
     Route: 065

REACTIONS (1)
  - Accidental exposure to product by child [Unknown]
